FAERS Safety Report 6145771-1 (Version None)
Quarter: 2009Q2

REPORT INFORMATION
  Report Type: 
  Country: None (occurrence: None)
  Receive Date: 20090406
  Receipt Date: 20090406
  Transmission Date: 20091009
  Serious: Yes (Hospitalization)
  Sender: FDA-Public Use
  Company Number: None

PATIENT
  Age: 20 Year
  Sex: Female
  Weight: 47.6277 kg

DRUGS (1)
  1. YAZ [Suspect]
     Indication: CONTRACEPTION
     Dosage: 3 MG/0.02 MG 28 DAYS ORAL
     Route: 048

REACTIONS (3)
  - DEPRESSION [None]
  - MOOD SWINGS [None]
  - WEIGHT DECREASED [None]
